FAERS Safety Report 4324896-7 (Version None)
Quarter: 2004Q1

REPORT INFORMATION
  Report Type: 
  Country: None (occurrence: None)
  Receive Date: 20040323
  Receipt Date: 20040129
  Transmission Date: 20041129
  Serious: No
  Sender: FDA-Public Use
  Company Number: M04-341-024

PATIENT
  Age: 71 Year
  Sex: Male

DRUGS (4)
  1. VELCADE [Suspect]
     Indication: MULTIPLE MYELOMA
     Dosage: 1.3 MG/M2: INTRAVENOUS BOLUS
     Route: 040
  2. AREDIA [Concomitant]
  3. PRINIVIL [Concomitant]
  4. VITAMIN E [Concomitant]

REACTIONS (1)
  - RASH [None]
